FAERS Safety Report 11889266 (Version 2)
Quarter: 2016Q1

REPORT INFORMATION
  Report Type: Spontaneous
  Country: US (occurrence: US)
  Receive Date: 20160105
  Receipt Date: 20160215
  Transmission Date: 20160526
  Serious: No
  Sender: FDA-Public Use
  Company Number: US-ROXANE LABORATORIES, INC.-2016-RO-00007RO

PATIENT
  Sex: Female

DRUGS (1)
  1. AMLODIPINE BESYLATE. [Suspect]
     Active Substance: AMLODIPINE BESYLATE
     Indication: BLOOD PRESSURE MANAGEMENT
     Route: 065

REACTIONS (4)
  - Drug ineffective [Unknown]
  - Peripheral swelling [Unknown]
  - Product quality issue [Unknown]
  - Cough [Unknown]
